FAERS Safety Report 9521042 (Version 1)
Quarter: 2013Q3

REPORT INFORMATION
  Report Type: Spontaneous
  Country: US (occurrence: None)
  Receive Date: 20130911
  Receipt Date: 20130911
  Transmission Date: 20140515
  Serious: No
  Sender: FDA-Public Use
  Company Number: AEUSA201200554

PATIENT
  Age: 27 Year
  Sex: Male
  Weight: 115.67 kg

DRUGS (3)
  1. GAMUNEX-C (10 PCT) [Suspect]
     Indication: MUSCLE CONTRACTIONS INVOLUNTARY
     Route: 042
     Dates: start: 20121130
  2. PREDNISONE [Concomitant]
  3. VALIUM [Concomitant]

REACTIONS (1)
  - Muscle twitching [None]
